FAERS Safety Report 18921298 (Version 2)
Quarter: 2021Q1

REPORT INFORMATION
  Report Type: Report from Study
  Country: CA (occurrence: CA)
  Receive Date: 20210222
  Receipt Date: 20210225
  Transmission Date: 20210420
  Serious: Yes (Hospitalization)
  Sender: FDA-Public Use
  Company Number: CA-JNJFOC-20210224121

PATIENT
  Age: 33 Year
  Sex: Female
  Weight: 43 kg

DRUGS (1)
  1. STELARA [Suspect]
     Active Substance: USTEKINUMAB
     Indication: CROHN^S DISEASE
     Route: 042
     Dates: start: 20210129

REACTIONS (5)
  - Off label use [Unknown]
  - Incorrect dose administered [Unknown]
  - Abscess [Unknown]
  - Diarrhoea haemorrhagic [Unknown]
  - Vomiting [Unknown]

NARRATIVE: CASE EVENT DATE: 20210129
